FAERS Safety Report 8375750-5 (Version None)
Quarter: 2012Q1

REPORT INFORMATION
  Report Type: 
  Country: None (occurrence: None)
  Receive Date: 20120323
  Receipt Date: 20111114
  Transmission Date: 20120608
  Serious: Yes (Hospitalization)
  Sender: FDA-Public Use
  Company Number: 163-21880-11111241

PATIENT
  Age: 86 Year
  Sex: Male

DRUGS (1)
  1. REVLIMID [Suspect]
     Indication: MULTIPLE MYELOMA
     Dosage: 15 MG, DAILY FOR 21D ON, FOLLOWED BY 7D OFF, PO
     Route: 048
     Dates: start: 20110701

REACTIONS (4)
  - DYSSTASIA [None]
  - FULL BLOOD COUNT DECREASED [None]
  - RASH [None]
  - VOMITING [None]
